FAERS Safety Report 13945173 (Version 2)
Quarter: 2017Q3

REPORT INFORMATION
  Report Type: Spontaneous
  Country: DE (occurrence: DE)
  Receive Date: 20170907
  Receipt Date: 20170912
  Transmission Date: 20171128
  Serious: Yes (Death, Hospitalization, Other)
  Sender: FDA-Public Use
  Company Number: DE-AUROBINDO-AUR-APL-2017-39869

PATIENT
  Age: 47 Year
  Sex: Male
  Weight: 81 kg

DRUGS (11)
  1. LEVOMEPROMAZINE [Concomitant]
     Active Substance: LEVOMEPROMAZINE
     Indication: SEDATION
     Dosage: 400 MG, DAILY
     Route: 065
  2. BIPERIDEN [Concomitant]
     Active Substance: BIPERIDEN
     Indication: SCHIZOPHRENIA
     Dosage: 8 MG, UNK
     Route: 065
  3. DISTRANEURINE                      /00027501/ [Concomitant]
     Active Substance: CLOMETHIAZOLE
     Indication: SCHIZOPHRENIA
     Route: 065
  4. RISPERIDONE. [Concomitant]
     Active Substance: RISPERIDONE
     Indication: SCHIZOPHRENIA
     Route: 065
  5. PHENOBARBITAL. [Concomitant]
     Active Substance: PHENOBARBITAL
     Indication: SCHIZOPHRENIA
     Route: 065
  6. PROMETHAZINE [Concomitant]
     Active Substance: PROMETHAZINE\PROMETHAZINE HYDROCHLORIDE
     Indication: SCHIZOPHRENIA
     Route: 065
  7. HALOPERIDOL. [Concomitant]
     Active Substance: HALOPERIDOL
     Indication: SCHIZOPHRENIA
     Dosage: 10 MG, UNK
     Route: 065
  8. PERAZINE [Concomitant]
     Active Substance: PERAZINE
     Indication: SCHIZOPHRENIA
     Route: 065
  9. OLANZAPINE 15MG [Suspect]
     Active Substance: OLANZAPINE
     Indication: SCHIZOPHRENIA
     Dosage: 15 MG, DAILY
     Route: 065
  10. AMITRIPTYLINE [Concomitant]
     Active Substance: AMITRIPTYLINE
     Indication: SCHIZOPHRENIA
     Route: 065
  11. CHLORPROTHIXENE [Concomitant]
     Active Substance: CHLORPROTHIXENE
     Indication: SCHIZOPHRENIA
     Dosage: 450 MG, UNK
     Route: 065

REACTIONS (12)
  - General physical health deterioration [Unknown]
  - Abdominal distension [Unknown]
  - Ileus paralytic [Unknown]
  - Abdominal pain [Unknown]
  - Dysuria [Unknown]
  - Pneumonia aspiration [Unknown]
  - Vomiting [Unknown]
  - Eating disorder [Unknown]
  - Peritonitis [Unknown]
  - Nausea [Unknown]
  - Cardiac failure [Fatal]
  - Gastrointestinal necrosis [Unknown]
